FAERS Safety Report 14445926 (Version 3)
Quarter: 2018Q1

REPORT INFORMATION
  Report Type: Spontaneous
  Country: GB (occurrence: GB)
  Receive Date: 20180126
  Receipt Date: 20180309
  Transmission Date: 20180509
  Serious: Yes (Other)
  Sender: FDA-Public Use
  Company Number: GB-ASTRAZENECA-2018SE09299

PATIENT
  Age: 15053 Day
  Sex: Female
  Weight: 77 kg

DRUGS (3)
  1. FORXIGA [Suspect]
     Active Substance: DAPAGLIFLOZIN
     Indication: TYPE 2 DIABETES MELLITUS
     Route: 048
     Dates: start: 20171201, end: 20180118
  2. ATORVASTATIN [Concomitant]
     Active Substance: ATORVASTATIN
     Dosage: 20.0MG UNKNOWN
     Route: 048
     Dates: start: 20170112
  3. ULIPRISTAL [Concomitant]
     Active Substance: ULIPRISTAL
     Dosage: 5.0MG UNKNOWN
     Route: 048
     Dates: start: 20170112

REACTIONS (3)
  - Pancreatitis [Unknown]
  - Abdominal pain [Recovered/Resolved]
  - Abdominal distension [Unknown]

NARRATIVE: CASE EVENT DATE: 20180114
